FAERS Safety Report 16275977 (Version 1)
Quarter: 2019Q2

REPORT INFORMATION
  Report Type: Spontaneous
  Country: US (occurrence: US)
  Receive Date: 20190506
  Receipt Date: 20190506
  Transmission Date: 20190711
  Serious: No
  Sender: FDA-Public Use
  Company Number: US-TEVA-2019-US-1045917

PATIENT
  Sex: Female

DRUGS (1)
  1. TESTOSTERONE TEVA [Suspect]
     Active Substance: TESTOSTERONE
     Indication: LIBIDO DECREASED
     Route: 065

REACTIONS (4)
  - Dysphonia [Unknown]
  - Throat tightness [Unknown]
  - Product odour abnormal [Not Recovered/Not Resolved]
  - Malaise [Unknown]
